FAERS Safety Report 6854870-8 (Version None)
Quarter: 2010Q3

REPORT INFORMATION
  Report Type: 
  Country: None (occurrence: None)
  Receive Date: 20100717
  Receipt Date: 20080228
  Transmission Date: 20110219
  Serious: No
  Sender: FDA-Public Use
  Company Number: US-PFIZER INC-2008003691

PATIENT
  Sex: Male
  Weight: 100 kg

DRUGS (4)
  1. CHANTIX [Suspect]
     Indication: SMOKING CESSATION THERAPY
     Dates: start: 20071229
  2. PEPTO-BISMOL [Suspect]
  3. IBUPROFEN [Concomitant]
  4. FISH OIL [Concomitant]

REACTIONS (2)
  - FAECES DISCOLOURED [None]
  - NAUSEA [None]
